FAERS Safety Report 4579179-7 (Version None)
Quarter: 2005Q1

REPORT INFORMATION
  Report Type: 
  Country: None (occurrence: None)
  Receive Date: 20050208
  Receipt Date: 20050208
  Transmission Date: 20050727
  Serious: Yes (Hospitalization)
  Sender: FDA-Public Use
  Company Number: None

PATIENT
  Age: 61 Year
  Sex: Male
  Weight: 109.7705 kg

DRUGS (7)
  1. BOSENTAN [Suspect]
     Indication: PULMONARY HYPERTENSION
     Dates: start: 20041104, end: 20041209
  2. PROTONIX [Concomitant]
  3. METOPROLOL [Concomitant]
  4. LEXAPRO [Concomitant]
  5. LIPITOR [Concomitant]
  6. PREDNISONE [Concomitant]
  7. ASPIRIN [Concomitant]

REACTIONS (1)
  - HEPATIC ENZYME INCREASED [None]
